FAERS Safety Report 22258480 (Version 1)
Quarter: 2023Q2

REPORT INFORMATION
  Report Type: Spontaneous
  Country: US (occurrence: US)
  Receive Date: 20230427
  Receipt Date: 20230427
  Transmission Date: 20230721
  Serious: Yes (Other)
  Sender: FDA-Public Use
  Company Number: US-STRIDES ARCOLAB LIMITED-2023SP004812

PATIENT
  Age: 54 Year
  Sex: Female

DRUGS (32)
  1. CYCLOSPORINE [Suspect]
     Active Substance: CYCLOSPORINE
     Indication: Angiolymphoid hyperplasia with eosinophilia
     Dosage: UNK
     Route: 048
  2. DOXEPIN HYDROCHLORIDE [Suspect]
     Active Substance: DOXEPIN HYDROCHLORIDE
     Indication: Granuloma skin
     Dosage: 10 MG/ML DAILY (STOP DATE: 14 APR 2021) ( FOR 4 MONTHS)
     Route: 065
     Dates: start: 20210414
  3. GABAPENTIN [Suspect]
     Active Substance: GABAPENTIN
     Indication: Granuloma skin
     Dosage: 300MG DAILY (31 MARCH 2022-21 OCTOBER 2022) FOR 7 MONTHS AND CONTINUED AT THE SAME DOSE
     Route: 065
     Dates: start: 20220331
  4. MINOCYCLINE [Suspect]
     Active Substance: MINOCYCLINE HYDROCHLORIDE
     Indication: Granuloma skin
     Dosage: 100 MILLIGRAM, BID (STOP DATE : 17 OCT 2018) (FOR ONE MONTH)
     Route: 065
     Dates: start: 20180905
  5. HYDROXYZINE HYDROCHLORIDE [Suspect]
     Active Substance: HYDROXYZINE HYDROCHLORIDE
     Indication: Angiolymphoid hyperplasia with eosinophilia
     Dosage: UNK, 25-50 MG DAILY, AS NEEDED (STOP DATE: 22 AUG 2018)
     Route: 065
     Dates: start: 20180318
  6. LORATADINE [Suspect]
     Active Substance: LORATADINE
     Indication: Angiolymphoid hyperplasia with eosinophilia
     Dosage: 10 MILLIGRAM DAILY, AS NEEDED, RECEIVING MORE THAN 4 YEARS
     Route: 065
     Dates: start: 20180518
  7. LORATADINE [Suspect]
     Active Substance: LORATADINE
     Indication: Granuloma skin
  8. METHOTREXATE [Suspect]
     Active Substance: METHOTREXATE
     Indication: Granuloma skin
     Dosage: UNK
     Route: 026
  9. METHOTREXATE [Suspect]
     Active Substance: METHOTREXATE
     Indication: Angiolymphoid hyperplasia with eosinophilia
     Dosage: UNK
     Route: 048
  10. METHOTREXATE [Suspect]
     Active Substance: METHOTREXATE
     Dosage: 15 MILLIGRAM, WEEKLY (PER WEEK)
     Route: 048
     Dates: start: 20171213, end: 20180426
  11. METHOTREXATE [Suspect]
     Active Substance: METHOTREXATE
     Dosage: 25 MILLIGRAM, WEEKLY (PER WEEK)
     Route: 048
     Dates: start: 20180518, end: 20190415
  12. METHOTREXATE [Suspect]
     Active Substance: METHOTREXATE
     Dosage: 15 MILLIGRAM, WEEKLY (PER WEEK)
     Route: 048
     Dates: start: 20190415, end: 20190523
  13. METHOTREXATE [Suspect]
     Active Substance: METHOTREXATE
     Dosage: 25 MILLIGRAM, RECEIVING MORE THAN 3 YEARS (PER WEEK)
     Route: 048
     Dates: start: 20190523
  14. CLOBETASOL [Suspect]
     Active Substance: CLOBETASOL
     Indication: Angiolymphoid hyperplasia with eosinophilia
     Dosage: UNK
     Route: 065
  15. CLOBETASOL [Suspect]
     Active Substance: CLOBETASOL
     Indication: Granuloma skin
     Dosage: 0.05 PERCENT, DAILY, AS NEEDED ( STOP DATE: 05 DEC 2018) (SEVEN MONTHS)
     Route: 065
     Dates: start: 20180518
  16. CLOBETASOL [Suspect]
     Active Substance: CLOBETASOL
     Dosage: 0.05 %, 2-3 TIMES WEEKLY
     Route: 065
     Dates: start: 20181205
  17. DAPSONE [Suspect]
     Active Substance: DAPSONE
     Indication: Granuloma skin
     Dosage: 25 MILLIGRAM  PER DAY (STOP DATE: 05 DEC 2018) (ONE MONTH)
     Route: 048
     Dates: start: 20181010
  18. DAPSONE [Suspect]
     Active Substance: DAPSONE
     Dosage: 100 MILLIGRAM/DAY (STOP DATE: 22 NOV 2019) (ONE YEAR)
     Route: 048
     Dates: start: 20181205
  19. DAPSONE [Suspect]
     Active Substance: DAPSONE
     Dosage: 150 MILLIGRAM/ DAY (STOP DATE: 18 SEP 2020) (10 MONTHS)
     Route: 048
     Dates: start: 20191122
  20. DAPSONE [Suspect]
     Active Substance: DAPSONE
     Dosage: 100 MILLIGRAM/DAY (STOP DATE: 2 MONTHS) 20 NOV 2020)
     Route: 048
     Dates: start: 20200918
  21. DAPSONE [Suspect]
     Active Substance: DAPSONE
     Dosage: 50 MILLIGRAM/ DAY (STOP DATE: 16 JUL 2021) (8 MONTHS)
     Route: 048
     Dates: start: 20201120
  22. DAPSONE [Suspect]
     Active Substance: DAPSONE
     Dosage: 100 MILLIGRAM/DAY (STOP DATE: 31 MAR 2022) (FOR 8 MONTHS)
     Route: 048
     Dates: start: 20210716
  23. DAPSONE [Suspect]
     Active Substance: DAPSONE
     Dosage: 150 MILLIGRAM, DAILY (STOP DATE: 02 JUN 2022)
     Route: 048
     Dates: start: 20220331
  24. FEXOFENADINE [Suspect]
     Active Substance: FEXOFENADINE HYDROCHLORIDE
     Indication: Angiolymphoid hyperplasia with eosinophilia
     Dosage: UNK
     Route: 065
  25. HYDROXYCHLOROQUINE [Suspect]
     Active Substance: HYDROXYCHLOROQUINE
     Indication: Granuloma skin
     Dosage: 400 MILLIGRAM DAILY (STOP DATE: 02 JUN 2022)
     Route: 065
     Dates: start: 20201102
  26. HYDROXYCHLOROQUINE [Suspect]
     Active Substance: HYDROXYCHLOROQUINE
     Dosage: 200 MILLIGRAM DAILY (WHICH IS CONTINUED AT THE SAME DOSE)
     Route: 065
     Dates: start: 20220602
  27. KENALOG [Suspect]
     Active Substance: TRIAMCINOLONE ACETONIDE
     Indication: Granuloma skin
     Dosage: 40 MG/ML, EVERY 6-12 WK (STOP DATE: 14 APR 2021)
     Route: 026
     Dates: start: 20181205
  28. MUPIROCIN [Suspect]
     Active Substance: MUPIROCIN
     Indication: Granuloma skin
     Dosage: 2 PERCENT, BID ( STOP DATE: 17 FEB 2020) (3 MONTHS)
     Route: 065
     Dates: start: 20191122
  29. MUPIROCIN [Suspect]
     Active Substance: MUPIROCIN
     Dosage: 2 PERCENT, BID (FOR SEVEN MONTHS)
     Route: 065
     Dates: start: 20200612
  30. TACROLIMUS [Suspect]
     Active Substance: TACROLIMUS
     Indication: Granuloma skin
     Dosage: 0.1 PERCENT BID (STOP DATE: 20 AUG 2021) (FOR SEVEN MONTHS)
     Route: 065
     Dates: start: 20210108
  31. TACROLIMUS [Suspect]
     Active Substance: TACROLIMUS
     Dosage: 0.1 PERCENT BID FOR TWO MONTHS (STOP DATE: 04 MAY 2022)
     Route: 065
     Dates: start: 20220321
  32. FLUOROURACIL [Suspect]
     Active Substance: FLUOROURACIL
     Indication: Angiolymphoid hyperplasia with eosinophilia
     Dosage: UNK
     Route: 026

REACTIONS (4)
  - Drug ineffective [Unknown]
  - Gastrointestinal disorder [Unknown]
  - Therapy partial responder [Unknown]
  - Off label use [Unknown]
